FAERS Safety Report 17298817 (Version 2)
Quarter: 2022Q2

REPORT INFORMATION
  Report Type: Spontaneous
  Country: US (occurrence: US)
  Receive Date: 20200122
  Receipt Date: 20220401
  Transmission Date: 20220720
  Serious: Yes (Other)
  Sender: FDA-Public Use
  Company Number: US-SUN PHARMACEUTICAL INDUSTRIES LTD-2020R1-233826

PATIENT
  Age: 77 Year
  Sex: Female

DRUGS (2)
  1. DECITABINE [Suspect]
     Active Substance: DECITABINE
     Indication: Acute myeloid leukaemia
     Dosage: 2 MILLIGRAM/SQ. METER, DAILY
     Route: 042
  2. VENETOCLAX [Suspect]
     Active Substance: VENETOCLAX
     Indication: Acute myeloid leukaemia
     Dosage: UNK (100 MG ESCALATING UP TO 300 MG)
     Route: 048

REACTIONS (7)
  - Pleural effusion [Unknown]
  - Clostridium difficile colitis [Unknown]
  - Urinary tract infection [Unknown]
  - Enterococcal infection [Unknown]
  - Anaemia [Recovering/Resolving]
  - Thrombocytopenia [Recovered/Resolved]
  - Pancytopenia [Recovering/Resolving]
